FAERS Safety Report 6576560-1 (Version None)
Quarter: 2010Q1

REPORT INFORMATION
  Report Type: 
  Country: None (occurrence: None)
  Receive Date: 20100210
  Receipt Date: 20100204
  Transmission Date: 20100710
  Serious: Yes (Other)
  Sender: FDA-Public Use
  Company Number: US-BAYER-201012535NA

PATIENT
  Age: 58 Year
  Sex: Female

DRUGS (6)
  1. BETASERON [Suspect]
     Indication: RELAPSING-REMITTING MULTIPLE SCLEROSIS
     Dosage: TOTAL DAILY DOSE: 0.25 MG
     Route: 057
     Dates: start: 20071101
  2. CALCIUM WITH VITAMIN D [Concomitant]
  3. FISH OIL [Concomitant]
  4. GLUCOSAMINE [Concomitant]
  5. MIRALAX [Concomitant]
  6. VAGIFEM [Concomitant]

REACTIONS (1)
  - LUNG NEOPLASM [None]
